FAERS Safety Report 8559349-3 (Version None)
Quarter: 2012Q3

REPORT INFORMATION
  Report Type: 
  Country: None (occurrence: None)
  Receive Date: 20120802
  Receipt Date: 20120731
  Transmission Date: 20120928
  Serious: Yes (Death)
  Sender: FDA-Public Use
  Company Number: PHEH2012US007124

PATIENT
  Sex: Male

DRUGS (1)
  1. RECLAST [Suspect]
     Indication: SENILE OSTEOPOROSIS
     Dosage: 5 MG ONCE ANNUALLY
     Route: 042
     Dates: start: 20110429

REACTIONS (2)
  - CARDIO-RESPIRATORY ARREST [None]
  - PARKINSON'S DISEASE [None]
